FAERS Safety Report 21359887 (Version 4)
Quarter: 2022Q4

REPORT INFORMATION
  Report Type: Report from Study
  Country: CA (occurrence: CA)
  Receive Date: 20220921
  Receipt Date: 20221107
  Transmission Date: 20230113
  Serious: Yes (Hospitalization, Other)
  Sender: FDA-Public Use
  Company Number: CA-ABBVIE-4127241

PATIENT
  Sex: Female

DRUGS (1)
  1. SKYRIZI [Suspect]
     Active Substance: RISANKIZUMAB-RZAA
     Indication: Psoriasis
     Route: 058
     Dates: start: 20200521

REACTIONS (16)
  - COVID-19 [Recovering/Resolving]
  - Organ failure [Recovering/Resolving]
  - Illness [Unknown]
  - Hepatic failure [Recovering/Resolving]
  - Dehydration [Recovering/Resolving]
  - Depressed level of consciousness [Recovering/Resolving]
  - Amnesia [Recovering/Resolving]
  - Near death experience [Unknown]
  - Renal failure [Recovering/Resolving]
  - Kidney infection [Recovering/Resolving]
  - Hepatic infection [Recovering/Resolving]
  - Renal impairment [Recovering/Resolving]
  - Inflammation [Unknown]
  - Fatigue [Recovered/Resolved]
  - Gait disturbance [Unknown]
  - Hepatic function abnormal [Recovering/Resolving]

NARRATIVE: CASE EVENT DATE: 20220101
